FAERS Safety Report 7800486-6 (Version None)
Quarter: 2011Q4

REPORT INFORMATION
  Report Type: 
  Country: None (occurrence: None)
  Receive Date: 20111006
  Receipt Date: 20110926
  Transmission Date: 20120403
  Serious: Yes (Other)
  Sender: FDA-Public Use
  Company Number: US-BAYER-2011-040598

PATIENT
  Age: 36 Year
  Sex: Female
  Weight: 54.422 kg

DRUGS (3)
  1. YAZ [Suspect]
     Indication: CONTRACEPTION
     Dosage: UNK
     Dates: end: 20100301
  2. DOXYCYCLINE [Concomitant]
     Dosage: 50 MG, BID
     Route: 048
  3. MULTI-VITAMIN [Concomitant]
     Indication: MEDICAL DIET
     Dosage: UNK UNK, QD
     Route: 048

REACTIONS (3)
  - CHOLELITHIASIS [None]
  - CHOLECYSTITIS CHRONIC [None]
  - INJURY [None]
